FAERS Safety Report 12329203 (Version 1)
Quarter: 2016Q2

REPORT INFORMATION
  Report Type: Spontaneous
  Country: FR (occurrence: FR)
  Receive Date: 20160503
  Receipt Date: 20160503
  Transmission Date: 20160815
  Serious: Yes (Other)
  Sender: FDA-Public Use
  Company Number: FR-ABBVIE-16P-056-1619045-00

PATIENT

DRUGS (1)
  1. DEPAKINE [Suspect]
     Active Substance: VALPROATE SODIUM
     Indication: MATERNAL EXPOSURE TIMING UNSPECIFIED
     Route: 064

REACTIONS (9)
  - Neurodevelopmental disorder [Unknown]
  - Speech disorder developmental [Unknown]
  - Intellectual disability [Unknown]
  - Foetal exposure during pregnancy [Unknown]
  - Mental disorder [Unknown]
  - Hypokinesia [Unknown]
  - Learning disorder [Unknown]
  - Abnormal behaviour [Unknown]
  - Aggression [Unknown]
